FAERS Safety Report 6063609-8 (Version None)
Quarter: 2009Q1

REPORT INFORMATION
  Report Type: 
  Country: None (occurrence: None)
  Receive Date: 20090203
  Receipt Date: 20090121
  Transmission Date: 20090719
  Serious: Yes (Hospitalization)
  Sender: FDA-Public Use
  Company Number: FR-GILEAD-2009-0019965

PATIENT
  Sex: Female

DRUGS (9)
  1. EMTRIVA [Suspect]
     Indication: PROPHYLAXIS AGAINST HIV INFECTION
     Route: 048
     Dates: start: 20080516, end: 20080516
  2. VIREAD [Suspect]
     Indication: PROPHYLAXIS AGAINST HIV INFECTION
     Route: 048
     Dates: start: 20080516, end: 20080516
  3. EPIVIR [Suspect]
     Indication: PROPHYLAXIS AGAINST HIV INFECTION
     Dates: start: 20080516, end: 20080516
  4. KALETRA [Suspect]
     Indication: PROPHYLAXIS AGAINST HIV INFECTION
     Route: 048
     Dates: start: 20080516
  5. NORVIR [Concomitant]
     Indication: PROPHYLAXIS AGAINST HIV INFECTION
     Dates: start: 20080516, end: 20080516
  6. RETROVIR [Concomitant]
     Indication: PROPHYLAXIS AGAINST HIV INFECTION
     Dates: start: 20080516, end: 20080516
  7. REYATAZ [Concomitant]
     Indication: PROPHYLAXIS AGAINST HIV INFECTION
     Dates: start: 20080516, end: 20080516
  8. VIDEX [Concomitant]
     Indication: PROPHYLAXIS AGAINST HIV INFECTION
     Dates: start: 20080516, end: 20080516
  9. ZERIT [Concomitant]
     Indication: PROPHYLAXIS AGAINST HIV INFECTION
     Dates: start: 20080516, end: 20080516

REACTIONS (5)
  - DIARRHOEA [None]
  - MEDICATION ERROR [None]
  - NAUSEA [None]
  - VERTIGO [None]
  - VOMITING [None]
